FAERS Safety Report 7700307-6 (Version None)
Quarter: 2011Q3

REPORT INFORMATION
  Report Type: 
  Country: None (occurrence: None)
  Receive Date: 20110822
  Receipt Date: 20110810
  Transmission Date: 20111222
  Serious: Yes (Other)
  Sender: FDA-Public Use
  Company Number: PHEH2010US03425

PATIENT
  Sex: Female

DRUGS (26)
  1. REGLAN [Concomitant]
  2. HEPARIN SODIUM [Concomitant]
  3. MELPHALAN HYDROCHLORIDE [Concomitant]
  4. AUGMENTIN '125' [Concomitant]
  5. PHENOBARBITAL TAB [Concomitant]
  6. ACCUPRIL [Concomitant]
     Dosage: 40 MG,
  7. STARLIX [Concomitant]
  8. PROCRIT [Concomitant]
     Dosage: 40000 U,
  9. ALAVERT [Concomitant]
  10. ACTOS [Concomitant]
  11. PREDNISONE [Concomitant]
  12. AREDIA [Suspect]
  13. ZOMETA [Suspect]
  14. OSCAL [Concomitant]
     Dosage: 1 DF, QD
  15. COLESTID [Concomitant]
  16. ACTOS [Concomitant]
  17. STEROIDS NOS [Concomitant]
  18. ASPIRIN [Concomitant]
  19. ZOCOR [Concomitant]
  20. VELCADE [Concomitant]
  21. CARDIZEM [Concomitant]
  22. INSULIN [Concomitant]
  23. VITAMIN E [Concomitant]
     Dosage: 1 DF, QD
  24. MEGACE [Concomitant]
  25. DARVOCET-N 50 [Concomitant]
  26. ASPIRIN [Concomitant]
     Dosage: 1 DF, QD

REACTIONS (65)
  - ANAEMIA [None]
  - VOMITING [None]
  - HYPOAESTHESIA [None]
  - HIATUS HERNIA [None]
  - ANXIETY [None]
  - PROTEINURIA [None]
  - ASTHENIA [None]
  - ARTHRALGIA [None]
  - NAUSEA [None]
  - GASTRITIS [None]
  - RASH MACULO-PAPULAR [None]
  - OSTEONECROSIS OF JAW [None]
  - ANHEDONIA [None]
  - HYPOGAMMAGLOBULINAEMIA [None]
  - OEDEMA PERIPHERAL [None]
  - INJURY [None]
  - OSTEOPOROSIS [None]
  - SLEEP DISORDER [None]
  - BACK PAIN [None]
  - FRACTURED SACRUM [None]
  - ARTERIOSCLEROSIS [None]
  - COLITIS [None]
  - INFECTION [None]
  - MULTIPLE MYELOMA [None]
  - BONE DISORDER [None]
  - OSTEOLYSIS [None]
  - NEURALGIA [None]
  - IMPAIRED GASTRIC EMPTYING [None]
  - ABDOMINAL PAIN [None]
  - BURSITIS [None]
  - AORTIC CALCIFICATION [None]
  - INTERVERTEBRAL DISC SPACE NARROWING [None]
  - EXOSTOSIS [None]
  - CONSTIPATION [None]
  - OSTEOPENIA [None]
  - BONE MARROW FAILURE [None]
  - PNEUMONIA [None]
  - CARDIAC DISORDER [None]
  - DIABETES MELLITUS [None]
  - WEIGHT DECREASED [None]
  - CORONARY ARTERY DISEASE [None]
  - SYNCOPE [None]
  - GROIN PAIN [None]
  - PARAESTHESIA [None]
  - SPINAL OSTEOARTHRITIS [None]
  - DISABILITY [None]
  - PAIN [None]
  - PATHOLOGICAL FRACTURE [None]
  - COUGH [None]
  - DIARRHOEA [None]
  - DYSPNOEA [None]
  - BREATH ODOUR [None]
  - EATING DISORDER [None]
  - BONE NEOPLASM [None]
  - PANCYTOPENIA [None]
  - CONVULSION [None]
  - ATELECTASIS [None]
  - RENAL IMPAIRMENT [None]
  - MENTAL STATUS CHANGES [None]
  - SINUS DISORDER [None]
  - OSTEOARTHRITIS [None]
  - BRONCHITIS [None]
  - HYPERCHOLESTEROLAEMIA [None]
  - CHEST PAIN [None]
  - PERICARDIAL EFFUSION [None]
